FAERS Safety Report 16777252 (Version 1)
Quarter: 2019Q3

REPORT INFORMATION
  Report Type: Spontaneous
  Country: BE (occurrence: BE)
  Receive Date: 20190905
  Receipt Date: 20190905
  Transmission Date: 20191005
  Serious: Yes (Other)
  Sender: FDA-Public Use
  Company Number: BE-ALLERGAN-1936102US

PATIENT
  Sex: Female

DRUGS (8)
  1. MEDROL [Concomitant]
     Active Substance: METHYLPREDNISOLONE
  2. FOSFOMYCIN TROMETHAMINE - BP [Suspect]
     Active Substance: FOSFOMYCIN TROMETHAMINE
     Indication: URINARY TRACT INFECTION
     Dosage: 1DF IN THE NIGHT FROM FRIDAY TO SATURDAY
     Route: 048
  3. PANTOMED (DEXPANTHENOL) [Concomitant]
     Active Substance: DEXPANTHENOL
     Dosage: 40 MG
  4. LEDERTREXATE [Concomitant]
     Active Substance: METHOTREXATE
  5. BEFACT [Concomitant]
  6. ZOLEDRONIC ACID [Suspect]
     Active Substance: ZOLEDRONIC ACID
     Indication: PRODUCT USED FOR UNKNOWN INDICATION
     Dosage: PERFUSION
     Route: 065
     Dates: start: 20190701
  7. EZETIMIBE SANDOZ [Concomitant]
     Active Substance: EZETIMIBE
  8. CARDIOASPIRINE [Concomitant]
     Active Substance: ASPIRIN
     Indication: TRANSIENT ISCHAEMIC ATTACK
     Dosage: UNK G

REACTIONS (3)
  - Delirium [Unknown]
  - Hallucination, visual [Unknown]
  - Fatigue [Unknown]
